FAERS Safety Report 7576176-4 (Version None)
Quarter: 2011Q2

REPORT INFORMATION
  Report Type: 
  Country: None (occurrence: None)
  Receive Date: 20110623
  Receipt Date: 20110623
  Transmission Date: 20111010
  Serious: Yes (Hospitalization)
  Sender: FDA-Public Use
  Company Number: None

PATIENT
  Sex: Female
  Weight: 41 kg

DRUGS (2)
  1. CISPLATIN [Suspect]
     Dosage: 66 MG
     Dates: end: 20110606
  2. TAXOL [Suspect]
     Dosage: 231 MG
     Dates: end: 20110606

REACTIONS (10)
  - ANAEMIA [None]
  - VOMITING [None]
  - NAUSEA [None]
  - BACTERIAL TEST POSITIVE [None]
  - BLOOD CREATINE INCREASED [None]
  - BACK PAIN [None]
  - CHILLS [None]
  - ARTHRALGIA [None]
  - PYREXIA [None]
  - PAIN IN EXTREMITY [None]
